FAERS Safety Report 9639970 (Version 1)
Quarter: 2013Q4

REPORT INFORMATION
  Report Type: Spontaneous
  Country: US (occurrence: None)
  Receive Date: 20131021
  Receipt Date: 20131021
  Transmission Date: 20140711
  Serious: Yes (Other)
  Sender: FDA-Public Use
  Company Number: None

PATIENT
  Age: 17 Year
  Sex: Female
  Weight: 58.97 kg

DRUGS (1)
  1. AZITHROMYCIN [Suspect]
     Indication: UPPER RESPIRATORY TRACT INFECTION
     Dosage: 250MG, 2 THE FIRST DAY, 1 FOR FOUR DAYS, ONCE DAILY, BY MOUTH
     Route: 048
     Dates: start: 20131016, end: 20131016

REACTIONS (1)
  - Syncope [None]
